FAERS Safety Report 8335305-5 (Version None)
Quarter: 2012Q2

REPORT INFORMATION
  Report Type: 
  Country: None (occurrence: None)
  Receive Date: 20120503
  Receipt Date: 20120426
  Transmission Date: 20120825
  Serious: Yes (Other)
  Sender: FDA-Public Use
  Company Number: BR-PFIZER INC-2012096140

PATIENT
  Age: 76 Year
  Sex: Female
  Weight: 64 kg

DRUGS (3)
  1. ACTONEL [Concomitant]
     Indication: OSTEOPOROSIS
     Dosage: UNK
  2. XALATAN [Suspect]
     Indication: GLAUCOMA
     Dosage: 3 UG, 1X/DAY (1 DROP IN EACH EYE, 1X/DAY)
     Route: 047
  3. LATANOPROST [Suspect]
     Dosage: UNK
     Route: 047

REACTIONS (6)
  - DRUG NAME CONFUSION [None]
  - HYPERTENSION [None]
  - DIABETES MELLITUS [None]
  - EYE IRRITATION [None]
  - DRUG DISPENSING ERROR [None]
  - WRONG DRUG ADMINISTERED [None]
